FAERS Safety Report 5569130-5 (Version None)
Quarter: 2007Q4

REPORT INFORMATION
  Report Type: 
  Country: None (occurrence: None)
  Receive Date: 20071220
  Receipt Date: 20070827
  Transmission Date: 20080405
  Serious: No
  Sender: FDA-Public Use
  Company Number: A0666320A

PATIENT
  Age: 67 Year
  Sex: Male

DRUGS (7)
  1. AVODART [Suspect]
     Indication: BENIGN PROSTATIC HYPERPLASIA
     Dosage: .5MG PER DAY
     Route: 048
     Dates: start: 20040801
  2. ATENOLOL [Concomitant]
  3. AMLODIPINE [Concomitant]
  4. PROTONIX [Concomitant]
  5. CRESTOR [Concomitant]
  6. VITAMIN CAP [Concomitant]
  7. VITAMIN B COMPLEX CAP [Concomitant]

REACTIONS (5)
  - BREAST SWELLING [None]
  - BREAST TENDERNESS [None]
  - GYNAECOMASTIA [None]
  - PHARMACEUTICAL PRODUCT COMPLAINT [None]
  - SENSORY DISTURBANCE [None]
